FAERS Safety Report 10064599 (Version 1)
Quarter: 2014Q2

REPORT INFORMATION
  Report Type: Spontaneous
  Country: US (occurrence: None)
  Receive Date: 20140407
  Receipt Date: 20140407
  Transmission Date: 20141212
  Serious: Yes (Hospitalization)
  Sender: FDA-Public Use
  Company Number: None

PATIENT
  Age: 14 Year
  Sex: Male

DRUGS (2)
  1. AFINITOR [Suspect]
     Indication: BRAIN NEOPLASM
     Dosage: 5 GM (1 TAB), DAILY, BY MOUTH
     Route: 048
     Dates: start: 20130606
  2. AFINITOR [Suspect]
     Dosage: 5 GM (1 TAB), DAILY, BY MOUTH
     Route: 048
     Dates: start: 20130606

REACTIONS (1)
  - Convulsion [None]
